FAERS Safety Report 9028395 (Version 1)
Quarter: 2013Q1

REPORT INFORMATION
  Report Type: Spontaneous
  Country: DE (occurrence: DE)
  Receive Date: 20130124
  Receipt Date: 20130124
  Transmission Date: 20140127
  Serious: Yes (Other)
  Sender: FDA-Public Use
  Company Number: DE-UCBSA-073429

PATIENT
  Sex: Female
  Weight: 83 kg

DRUGS (12)
  1. NEUPRO [Suspect]
     Indication: RESTLESS LEGS SYNDROME
     Dosage: DRUG STRENGTH:2 MG,ROOM TEMPERATURE FORMULATION
  2. NEUPRO [Suspect]
     Indication: RESTLESS LEGS SYNDROME
     Dosage: REFRIGERATED FORMULATION
     Route: 062
     Dates: start: 20111024
  3. KEPPRA [Concomitant]
     Dates: start: 20100323
  4. MADOPAR LT [Concomitant]
     Dates: start: 20110323
  5. ARCOXIA [Concomitant]
     Dates: start: 20120802
  6. VOLTAREN [Concomitant]
     Dates: start: 20120713
  7. ASPIRIN 100 [Concomitant]
     Dates: start: 20090502
  8. NOVALGIN [Concomitant]
  9. ATACAND [Concomitant]
  10. CONCOR [Concomitant]
  11. TOREM [Concomitant]
  12. VOLTAREN SCHMERZGEL [Concomitant]

REACTIONS (1)
  - Skin reaction [Unknown]
